FAERS Safety Report 7042260-7 (Version None)
Quarter: 2010Q4

REPORT INFORMATION
  Report Type: 
  Country: None (occurrence: None)
  Receive Date: 20101013
  Receipt Date: 20091013
  Transmission Date: 20110411
  Serious: Yes (Other)
  Sender: FDA-Public Use
  Company Number: US-ASTRAZENECA-2009SE19720

PATIENT

DRUGS (1)
  1. SYMBICORT [Suspect]
     Dosage: TWO PUFFS
     Route: 055

REACTIONS (1)
  - ANAPHYLACTIC REACTION [None]
